FAERS Safety Report 4733848-4 (Version None)
Quarter: 2005Q3

REPORT INFORMATION
  Report Type: 
  Country: None (occurrence: None)
  Receive Date: 20050803
  Receipt Date: 20050309
  Transmission Date: 20060218
  Serious: Yes (Hospitalization, Disabling)
  Sender: FDA-Public Use
  Company Number: US-MERCK-0503USA02024

PATIENT
  Age: 76 Year
  Sex: Female
  Weight: 86 kg

DRUGS (6)
  1. VIOXX [Suspect]
     Indication: ARTHRITIS
     Route: 048
     Dates: start: 20011001, end: 20040901
  2. VIOXX [Suspect]
     Route: 048
     Dates: start: 20011001, end: 20040901
  3. GLUCOTROL [Concomitant]
     Indication: DIABETES MELLITUS
     Route: 065
  4. AVAPRO [Concomitant]
     Indication: HYPERTENSION
     Route: 065
  5. ASPIRIN [Concomitant]
     Route: 065
  6. DETROL [Concomitant]
     Indication: INCONTINENCE
     Route: 065

REACTIONS (5)
  - ANHEDONIA [None]
  - CHEST PAIN [None]
  - MYOCARDIAL INFARCTION [None]
  - PAIN [None]
  - POLYTRAUMATISM [None]
